FAERS Safety Report 10023712 (Version 1)
Quarter: 2014Q1

REPORT INFORMATION
  Report Type: Spontaneous
  Country: US (occurrence: None)
  Receive Date: 20140319
  Receipt Date: 20140319
  Transmission Date: 20141002
  Serious: Yes (Life-Threatening, Hospitalization)
  Sender: FDA-Public Use
  Company Number: None

PATIENT
  Age: 43 Year
  Sex: Female

DRUGS (2)
  1. SMX-TMP [Suspect]
     Indication: SKIN INFECTION
     Dosage: 1 PILL, TWICE DAILY, TAKEN BY MOUTH
     Route: 048
     Dates: start: 20140303, end: 20140317
  2. DOXYCYCLINE [Suspect]
     Dosage: 1 PILL, TWICE DAILY, TAKEN BY MOUTH
     Route: 048
     Dates: start: 20140303, end: 20140317

REACTIONS (4)
  - Diarrhoea [None]
  - Vomiting [None]
  - Loss of consciousness [None]
  - Rash [None]
